FAERS Safety Report 21402047 (Version 1)
Quarter: 2022Q4

REPORT INFORMATION
  Report Type: Spontaneous
  Country: CA (occurrence: None)
  Receive Date: 20221003
  Receipt Date: 20221003
  Transmission Date: 20230113
  Serious: Yes (Other)
  Sender: FDA-Public Use
  Company Number: CA-PFIZER INC-202201193783

PATIENT
  Age: 57 Year
  Sex: Female

DRUGS (4)
  1. METHOTREXATE [Suspect]
     Active Substance: METHOTREXATE
     Indication: Product used for unknown indication
     Route: 065
     Dates: start: 2009
  2. METHOTREXATE [Suspect]
     Active Substance: METHOTREXATE
     Route: 065
  3. SULFASALAZINE [Concomitant]
     Active Substance: SULFASALAZINE
     Dosage: FEW DOSES
     Route: 065
     Dates: start: 2009
  4. PREDNISONE [Concomitant]
     Active Substance: PREDNISONE
     Dosage: VARING DOSES
     Route: 065
     Dates: start: 2009

REACTIONS (2)
  - Neutropenia [Not Recovered/Not Resolved]
  - Drug intolerance [Not Recovered/Not Resolved]
